FAERS Safety Report 24911567 (Version 1)
Quarter: 2025Q1

REPORT INFORMATION
  Report Type: Spontaneous
  Country: AU (occurrence: AU)
  Receive Date: 20250131
  Receipt Date: 20250131
  Transmission Date: 20250409
  Serious: Yes (Hospitalization, Other)
  Sender: ALEXION PHARMACEUTICALS
  Company Number: AU-SA-2025SA023645

PATIENT

DRUGS (1)
  1. NIRSEVIMAB [Suspect]
     Active Substance: NIRSEVIMAB
     Route: 065

REACTIONS (6)
  - Apnoea [Recovered/Resolved]
  - Device dislocation [Recovered/Resolved]
  - Irritability [Unknown]
  - Lethargy [Unknown]
  - Nasogastric output abnormal [Unknown]
  - Rash [Recovering/Resolving]
